FAERS Safety Report 11391364 (Version 1)
Quarter: 2015Q3

REPORT INFORMATION
  Report Type: Spontaneous
  Country: US (occurrence: None)
  Receive Date: 20150814
  Receipt Date: 20150814
  Transmission Date: 20151125
  Serious: No
  Sender: FDA-Public Use
  Company Number: None

PATIENT
  Age: 47 Year
  Sex: Female
  Weight: 114.31 kg

DRUGS (18)
  1. VITAMIN D [Concomitant]
     Active Substance: CHOLECALCIFEROL
  2. IBUPROFEN. [Concomitant]
     Active Substance: IBUPROFEN
  3. ALLEGRA [Concomitant]
     Active Substance: FEXOFENADINE HYDROCHLORIDE
  4. TYLENOL [Concomitant]
     Active Substance: ACETAMINOPHEN
  5. PARAGARD T 380A [Suspect]
     Active Substance: COPPER
     Dates: start: 20090901, end: 20150811
  6. HCTZ [Concomitant]
     Active Substance: HYDROCHLOROTHIAZIDE
  7. PREVACID [Concomitant]
     Active Substance: LANSOPRAZOLE
  8. GABAPENTIN. [Concomitant]
     Active Substance: GABAPENTIN
  9. FLECAINIDE [Concomitant]
     Active Substance: FLECAINIDE
  10. METFORMIN [Concomitant]
     Active Substance: METFORMIN HYDROCHLORIDE
  11. IBUPROFEN. [Concomitant]
     Active Substance: IBUPROFEN
  12. CYCLOBENZAPRINE [Concomitant]
     Active Substance: CYCLOBENZAPRINE
  13. ASPIRIN. [Concomitant]
     Active Substance: ASPIRIN
  14. TYLENOL [Concomitant]
     Active Substance: ACETAMINOPHEN
  15. TRAMADOL. [Concomitant]
     Active Substance: TRAMADOL
  16. ZEBETA [Concomitant]
     Active Substance: BISOPROLOL FUMARATE
  17. VITAMIN D [Concomitant]
     Active Substance: CHOLECALCIFEROL
  18. ALLEGRA [Concomitant]
     Active Substance: FEXOFENADINE HYDROCHLORIDE

REACTIONS (4)
  - Embedded device [None]
  - Device dislocation [None]
  - Dyspareunia [None]
  - Vaginal haemorrhage [None]

NARRATIVE: CASE EVENT DATE: 20150811
